FAERS Safety Report 18867893 (Version 1)
Quarter: 2021Q1

REPORT INFORMATION
  Report Type: Spontaneous
  Country: NO (occurrence: NO)
  Receive Date: 20210209
  Receipt Date: 20210209
  Transmission Date: 20210420
  Serious: Yes (Other)
  Sender: FDA-Public Use
  Company Number: NO-MYLANLABS-2021M1007585

PATIENT
  Age: 40 Year
  Sex: Female

DRUGS (1)
  1. NAPROXEN MYLAN [Suspect]
     Active Substance: NAPROXEN
     Indication: PRODUCT USED FOR UNKNOWN INDICATION
     Dosage: DOSAGE OF 1 TABLET, TWICE PER DAY FOR A TOTAL OF 5 DAYS

REACTIONS (9)
  - Nausea [Unknown]
  - Joint swelling [Unknown]
  - Swelling face [Unknown]
  - Contusion [Unknown]
  - Haematemesis [Unknown]
  - Abdominal pain upper [Unknown]
  - Paraesthesia [Not Recovered/Not Resolved]
  - Dizziness [Unknown]
  - Chromaturia [Unknown]
